FAERS Safety Report 8823326 (Version 3)
Quarter: 2018Q2

REPORT INFORMATION
  Report Type: Spontaneous
  Country: US (occurrence: US)
  Receive Date: 20121003
  Receipt Date: 20180503
  Transmission Date: 20180711
  Serious: Yes (Other)
  Sender: FDA-Public Use
  Company Number: US-009507513-1209USA010320

PATIENT
  Sex: Female

DRUGS (5)
  1. CITRACAL + D [Concomitant]
     Active Substance: CALCIUM CITRATE\VITAMIN D
     Dosage: 1 DF, QD
     Dates: start: 1993, end: 2010
  2. IMITREX [Concomitant]
     Active Substance: SUMATRIPTAN SUCCINATE
     Indication: MIGRAINE
     Dosage: UNK
     Dates: start: 1993
  3. VITAMINS (UNSPECIFIED) [Concomitant]
     Active Substance: VITAMINS
     Dosage: 1 DF, QD
     Dates: start: 1993
  4. FOSAMAX [Suspect]
     Active Substance: ALENDRONATE SODIUM
     Indication: OSTEOPOROSIS
     Dosage: 10 MG, QD
     Route: 048
     Dates: start: 19990108, end: 20100910
  5. FOSAMAX [Suspect]
     Active Substance: ALENDRONATE SODIUM
     Dosage: 70 MG, QW
     Route: 048
     Dates: start: 19990108, end: 20100910

REACTIONS (24)
  - Inflammatory bowel disease [Unknown]
  - Rotator cuff syndrome [Unknown]
  - Enthesopathy [Unknown]
  - Joint effusion [Unknown]
  - Frustration tolerance decreased [Unknown]
  - Pain [Unknown]
  - Hypothyroidism [Unknown]
  - Adverse event [Unknown]
  - Disturbance in attention [Unknown]
  - Fibrocystic breast disease [Unknown]
  - Benign neoplasm of thyroid gland [Unknown]
  - Irritability [Unknown]
  - Femur fracture [Unknown]
  - Rash [Unknown]
  - Hypertension [Unknown]
  - Adverse event [Unknown]
  - Impaired healing [Unknown]
  - Muscle spasms [Unknown]
  - Vitamin D deficiency [Unknown]
  - Foot deformity [Unknown]
  - Spinal column stenosis [Unknown]
  - Muscular weakness [Unknown]
  - Nephrolithiasis [Unknown]
  - Sciatica [Unknown]

NARRATIVE: CASE EVENT DATE: 200605
